FAERS Safety Report 12417465 (Version 1)
Quarter: 2016Q2

REPORT INFORMATION
  Report Type: Spontaneous
  Country: ME (occurrence: ME)
  Receive Date: 20160530
  Receipt Date: 20160530
  Transmission Date: 20160815
  Serious: Yes (Other)
  Sender: FDA-Public Use
  Company Number: ME-JNJFOC-20140910223

PATIENT
  Age: 35 Year
  Sex: Male
  Weight: 80 kg

DRUGS (6)
  1. DEXAZON [Concomitant]
     Indication: PREMEDICATION
     Route: 042
     Dates: start: 20140908
  2. REMICADE [Suspect]
     Active Substance: INFLIXIMAB
     Indication: ANKYLOSING SPONDYLITIS
     Dosage: 0,2,6,8 WEEKS
     Route: 042
     Dates: start: 20140714
  3. PARACETAMOL [Concomitant]
     Active Substance: ACETAMINOPHEN
     Indication: PREMEDICATION
     Dosage: 2 TABLETS OF 500 MG
     Route: 048
     Dates: start: 20140908
  4. REMICADE [Suspect]
     Active Substance: INFLIXIMAB
     Indication: ANKYLOSING SPONDYLITIS
     Dosage: 0,2,6,8 WEEKS
     Route: 042
     Dates: start: 20140519
  5. REMICADE [Suspect]
     Active Substance: INFLIXIMAB
     Indication: ANKYLOSING SPONDYLITIS
     Dosage: 0,2,6,8 WEEKS
     Route: 042
     Dates: start: 20140908, end: 20140908
  6. REMICADE [Suspect]
     Active Substance: INFLIXIMAB
     Indication: ANKYLOSING SPONDYLITIS
     Dosage: 0,2,6,8 WEEKS
     Route: 042
     Dates: start: 20130703

REACTIONS (8)
  - Palpitations [Recovered/Resolved]
  - Asphyxia [Recovered/Resolved]
  - Infusion related reaction [Recovered/Resolved]
  - Hypertension [Recovered/Resolved]
  - Ocular hyperaemia [Recovered/Resolved]
  - Drug intolerance [Unknown]
  - Erythema [Recovered/Resolved]
  - Bronchospasm [Recovered/Resolved]

NARRATIVE: CASE EVENT DATE: 20140519
